FAERS Safety Report 17208820 (Version 1)
Quarter: 2019Q4

REPORT INFORMATION
  Report Type: Report from Study
  Country: None (occurrence: US)
  Receive Date: 20191227
  Receipt Date: 20191227
  Transmission Date: 20200122
  Serious: Yes (Hospitalization, Other)
  Sender: FDA-Public Use
  Company Number: US-ABBVIE-19K-163-3207711-00

PATIENT
  Sex: Male

DRUGS (1)
  1. CREON [Suspect]
     Active Substance: PANCRELIPASE AMYLASE\PANCRELIPASE LIPASE\PANCRELIPASE PROTEASE
     Indication: PRODUCT USED FOR UNKNOWN INDICATION
     Route: 048

REACTIONS (7)
  - Portal vein thrombosis [Unknown]
  - Pancreatitis [Unknown]
  - Urinary tract infection [Unknown]
  - Respiratory failure [Unknown]
  - Nephrolithiasis [Unknown]
  - Hypotension [Unknown]
  - Urosepsis [Unknown]

NARRATIVE: CASE EVENT DATE: 2019
